FAERS Safety Report 13740238 (Version 1)
Quarter: 2017Q3

REPORT INFORMATION
  Report Type: Spontaneous
  Country: US (occurrence: US)
  Receive Date: 20170711
  Receipt Date: 20170711
  Transmission Date: 20171127
  Serious: No
  Sender: FDA-Public Use
  Company Number: US-STRIDES ARCOLAB LIMITED-2017SP005653

PATIENT

DRUGS (3)
  1. ERYTHROMYCIN. [Concomitant]
     Active Substance: ERYTHROMYCIN
     Indication: ACTINIC KERATOSIS
     Dosage: UNK UNK, PRN
     Route: 061
  2. IMIQUIMOD. [Suspect]
     Active Substance: IMIQUIMOD
     Indication: ACTINIC KERATOSIS
     Dosage: UNK UNK, AT BED TIME
     Route: 061
  3. IMIQUIMOD. [Suspect]
     Active Substance: IMIQUIMOD
     Dosage: UNK
     Route: 061

REACTIONS (1)
  - Eye irritation [Recovered/Resolved]
